FAERS Safety Report 5297509-8 (Version None)
Quarter: 2007Q2

REPORT INFORMATION
  Report Type: 
  Country: None (occurrence: None)
  Receive Date: 20070416
  Receipt Date: 20070403
  Transmission Date: 20071010
  Serious: Yes (Hospitalization, Disabling)
  Sender: FDA-Public Use
  Company Number: US-JNJFOC-20070401175

PATIENT
  Sex: Male

DRUGS (10)
  1. VIADUR [Suspect]
     Indication: PROSTATE CANCER
     Route: 058
  2. COREG [Concomitant]
     Route: 065
  3. PLAVIX [Concomitant]
     Route: 065
  4. LISINOPRIL [Concomitant]
     Route: 065
  5. ASPIRIN [Concomitant]
     Route: 065
  6. HYDROCHLOROTHIAZIDE [Concomitant]
     Route: 065
  7. XANAX [Concomitant]
     Route: 065
  8. ZOCOR [Concomitant]
     Route: 065
  9. AMIODARONE HCL [Concomitant]
     Route: 065
  10. GLIPIZIDE [Concomitant]
     Route: 065

REACTIONS (6)
  - ASTHENIA [None]
  - CARDIAC ARREST [None]
  - CHEST PAIN [None]
  - DYSPNOEA [None]
  - MYOCARDIAL INFARCTION [None]
  - VENTRICULAR TACHYCARDIA [None]
